FAERS Safety Report 18382125 (Version 2)
Quarter: 2021Q1

REPORT INFORMATION
  Report Type: Spontaneous
  Country: US (occurrence: US)
  Receive Date: 20201014
  Receipt Date: 20210208
  Transmission Date: 20210419
  Serious: No
  Sender: FDA-Public Use
  Company Number: US-PFIZER INC-2020396818

PATIENT
  Age: 75 Year
  Sex: Female

DRUGS (1)
  1. IBRANCE [Suspect]
     Active Substance: PALBOCICLIB
     Indication: BREAST CANCER FEMALE
     Dosage: 75 MG, ONCE DAILY, 21 DAYS ON EVERY 28 DAYS
     Dates: start: 20180119

REACTIONS (2)
  - Product dose omission issue [Unknown]
  - Tremor [Not Recovered/Not Resolved]
